FAERS Safety Report 6717805-4 (Version None)
Quarter: 2010Q2

REPORT INFORMATION
  Report Type: 
  Country: None (occurrence: None)
  Receive Date: 20100503
  Receipt Date: 20100423
  Transmission Date: 20101027
  Serious: Yes (Other)
  Sender: FDA-Public Use
  Company Number: 10-000617

PATIENT
  Age: 43 Year
  Sex: Female
  Weight: 55.3 kg

DRUGS (3)
  1. LOESTRIN 24 FE [Suspect]
     Indication: UTERINE LEIOMYOMA
     Dosage: 20/1000 UG TABLET DAILY, ORAL
     Route: 048
     Dates: start: 20100403, end: 20100424
  2. FIBROVAN [Suspect]
     Indication: ANTICOAGULANT THERAPY
     Dosage: ORAL
     Route: 048
     Dates: start: 20100419, end: 20100424
  3. VICODIN [Concomitant]

REACTIONS (12)
  - ABDOMINAL DISTENSION [None]
  - ABDOMINAL PAIN UPPER [None]
  - CHEST DISCOMFORT [None]
  - CHILLS [None]
  - DIZZINESS [None]
  - GAIT DISTURBANCE [None]
  - HYPERHIDROSIS [None]
  - HYPOAESTHESIA [None]
  - MALAISE [None]
  - METRORRHAGIA [None]
  - PYREXIA [None]
  - VAGINAL HAEMORRHAGE [None]
